FAERS Safety Report 6205951-3 (Version None)
Quarter: 2009Q2

REPORT INFORMATION
  Report Type: 
  Country: None (occurrence: None)
  Receive Date: 20090527
  Receipt Date: 20090527
  Transmission Date: 20091009
  Serious: Yes (Hospitalization)
  Sender: FDA-Public Use
  Company Number: None

PATIENT
  Sex: Female
  Weight: 61 kg

DRUGS (5)
  1. VORICONAZOLE [Suspect]
     Indication: FUNGAL INFECTION
     Dosage: 200 MG Q12H PO
     Route: 048
  2. SIMVASTATIN [Suspect]
     Indication: HYPERLIPIDAEMIA
     Dosage: 80 MG DAILY PO
     Route: 048
  3. IRON SULFATETHIAMIN COMPOUND TAB [Concomitant]
  4. LISINOPRIL [Concomitant]
  5. AUGMENTIN [Concomitant]

REACTIONS (8)
  - ABASIA [None]
  - BODY TEMPERATURE INCREASED [None]
  - HYPOPHAGIA [None]
  - JOINT SWELLING [None]
  - NAUSEA [None]
  - RHABDOMYOLYSIS [None]
  - URINARY RETENTION [None]
  - VOMITING [None]
